FAERS Safety Report 15183623 (Version 2)
Quarter: 2019Q3

REPORT INFORMATION
  Report Type: Report from Study
  Country: US (occurrence: US)
  Receive Date: 20180723
  Receipt Date: 20190712
  Transmission Date: 20191004
  Serious: Yes (Death)
  Sender: FDA-Public Use
  Company Number: US-ASTRAZENECA-2018SE93553

PATIENT
  Sex: Male

DRUGS (1)
  1. MOVANTIK [Suspect]
     Active Substance: NALOXEGOL OXALATE
     Indication: CONSTIPATION
     Dosage: 25.0MG UNKNOWN
     Route: 048
     Dates: start: 20160715, end: 20160725

REACTIONS (3)
  - Metastatic neoplasm [Fatal]
  - Product use in unapproved indication [Recovered/Resolved]
  - Off label use [Recovered/Resolved]
